FAERS Safety Report 16747464 (Version 8)
Quarter: 2020Q1

REPORT INFORMATION
  Report Type: Report from Study
  Country: US (occurrence: US)
  Receive Date: 20190827
  Receipt Date: 20200330
  Transmission Date: 20200409
  Serious: Yes (Hospitalization)
  Sender: FDA-Public Use
  Company Number: US-ACTELION-A-NJ2018-182782

PATIENT
  Age: 63 Year
  Sex: Female
  Weight: 96.6 kg

DRUGS (10)
  1. VELETRI [Suspect]
     Active Substance: EPOPROSTENOL
     Dosage: 48 NG/KG, PER MIN
     Route: 042
  2. VELETRI [Suspect]
     Active Substance: EPOPROSTENOL
     Dosage: 55.6 NG/KG, PER MIN
     Route: 042
  3. OXYGEN. [Concomitant]
     Active Substance: OXYGEN
     Dosage: 3 L/MIN AT NIGHT VIA CPAP
  4. TORSEMIDE. [Suspect]
     Active Substance: TORSEMIDE
     Indication: PRODUCT USED FOR UNKNOWN INDICATION
     Route: 065
  5. VELETRI [Suspect]
     Active Substance: EPOPROSTENOL
     Indication: PULMONARY ARTERIAL HYPERTENSION
     Dosage: 59.7 NG/KG, PER MIN
     Route: 042
  6. OPSUMIT [Suspect]
     Active Substance: MACITENTAN
     Indication: PULMONARY ARTERIAL HYPERTENSION
     Dosage: 10 MG, QD
     Route: 048
     Dates: start: 20131127
  7. WARFARIN [Concomitant]
     Active Substance: WARFARIN
  8. REVATIO [Concomitant]
     Active Substance: SILDENAFIL CITRATE
  9. VELETRI [Suspect]
     Active Substance: EPOPROSTENOL
     Dosage: 49 NG/KG, PER MIN
     Route: 042
  10. VELETRI [Suspect]
     Active Substance: EPOPROSTENOL
     Dosage: 59 NG/KG, PER MIN
     Route: 042

REACTIONS (57)
  - Catheter site haemorrhage [Unknown]
  - Device breakage [Unknown]
  - Sinusitis [Unknown]
  - Decreased activity [Unknown]
  - Dyspnoea exertional [Unknown]
  - Breast cellulitis [Unknown]
  - Fall [Unknown]
  - Flushing [Unknown]
  - Tenderness [Unknown]
  - Lacrimation increased [Unknown]
  - Fatigue [Unknown]
  - Malaise [Unknown]
  - Fungal infection [Unknown]
  - Wheezing [Unknown]
  - Blood creatinine increased [Unknown]
  - Feeling cold [Unknown]
  - Insomnia [Unknown]
  - Oedema [Unknown]
  - Fluid retention [Unknown]
  - Dyspnoea [Unknown]
  - Syncope [Unknown]
  - Rhinorrhoea [Not Recovered/Not Resolved]
  - Abdominal discomfort [Unknown]
  - General physical health deterioration [Unknown]
  - Hypotension [Unknown]
  - Device leakage [Unknown]
  - Pyrexia [Unknown]
  - Pain in extremity [Unknown]
  - International normalised ratio decreased [Unknown]
  - Heart rate increased [Unknown]
  - Palpitations [Unknown]
  - Chest discomfort [Unknown]
  - Arthralgia [Unknown]
  - Nausea [Unknown]
  - Diarrhoea [Unknown]
  - Headache [Unknown]
  - Weight decreased [Unknown]
  - Gastrointestinal bacterial overgrowth [Unknown]
  - Joint injury [Unknown]
  - Nasal congestion [Unknown]
  - Product dose omission [Unknown]
  - Chills [Unknown]
  - Pain in jaw [Unknown]
  - Rash [Unknown]
  - Renal function test abnormal [Unknown]
  - Dysphonia [Unknown]
  - Pulmonary hypertension [Unknown]
  - Loss of consciousness [Unknown]
  - Contusion [Unknown]
  - Depression [Unknown]
  - Catheter management [Unknown]
  - Sinus disorder [Unknown]
  - Dyspnoea at rest [Unknown]
  - Catheter site erythema [Unknown]
  - Catheter site discharge [Unknown]
  - Weight increased [Unknown]
  - Oedema peripheral [Unknown]

NARRATIVE: CASE EVENT DATE: 201903
